FAERS Safety Report 5661782-4 (Version None)
Quarter: 2008Q1

REPORT INFORMATION
  Report Type: 
  Country: None (occurrence: None)
  Receive Date: 20080312
  Receipt Date: 20080228
  Transmission Date: 20080703
  Serious: Yes (Other)
  Sender: FDA-Public Use
  Company Number: JP-ASTRAZENECA-2008AP00998

PATIENT
  Age: 75 Year
  Sex: Female

DRUGS (9)
  1. SEROQUEL [Suspect]
     Route: 048
     Dates: start: 20071204, end: 20080111
  2. SEROQUEL [Suspect]
     Route: 048
     Dates: start: 20080112, end: 20080123
  3. SEROQUEL [Suspect]
     Route: 048
     Dates: start: 20080128
  4. TAKEPRON [Concomitant]
     Route: 048
  5. GASMOTIN [Concomitant]
     Route: 048
  6. MAGMITT [Concomitant]
     Route: 048
  7. CILOSMERCK [Concomitant]
     Route: 048
  8. FERROMIA [Concomitant]
     Route: 048
  9. PERMAX [Concomitant]
     Route: 048

REACTIONS (1)
  - ANAEMIA [None]
